FAERS Safety Report 6055886-4 (Version None)
Quarter: 2009Q1

REPORT INFORMATION
  Report Type: 
  Country: None (occurrence: None)
  Receive Date: 20090126
  Receipt Date: 20090116
  Transmission Date: 20090719
  Serious: Yes (Hospitalization)
  Sender: FDA-Public Use
  Company Number: TRP_06003_2008

PATIENT
  Sex: Male
  Weight: 57 kg

DRUGS (2)
  1. ADVAFERON [Suspect]
     Indication: HEPATITIS C
     Dosage: (18 MIU, UID/QD, SUBCUTANEOUS), (18 MILLION IU 3X/WEEK SUBCUTANEOUS)
     Route: 058
     Dates: start: 20040408, end: 20040421
  2. ADVAFERON [Suspect]
     Indication: HEPATITIS C
     Dosage: (18 MIU, UID/QD, SUBCUTANEOUS), (18 MILLION IU 3X/WEEK SUBCUTANEOUS)
     Route: 058
     Dates: start: 20040422, end: 20040921

REACTIONS (1)
  - INTESTINAL ISCHAEMIA [None]
